FAERS Safety Report 9357674 (Version 2)
Quarter: 2013Q2

REPORT INFORMATION
  Report Type: Spontaneous
  Country: FR (occurrence: FR)
  Receive Date: 20130620
  Receipt Date: 20130624
  Transmission Date: 20140414
  Serious: Yes (Life-Threatening, Other)
  Sender: FDA-Public Use
  Company Number: FR-PFIZER INC-2013183446

PATIENT
  Age: 53 Year
  Sex: Male

DRUGS (2)
  1. LYRICA [Suspect]
     Dosage: 1 BOX
     Route: 048
     Dates: start: 20130528, end: 20130528
  2. CLOMIPRAMINE HYDROCHLORIDE [Suspect]
     Dosage: 1 BOX
     Route: 048
     Dates: start: 20130528, end: 20130528

REACTIONS (4)
  - Coma [Recovered/Resolved with Sequelae]
  - Grand mal convulsion [Recovered/Resolved with Sequelae]
  - Circulatory collapse [Recovered/Resolved with Sequelae]
  - Toxicity to various agents [Unknown]
